FAERS Safety Report 15932547 (Version 1)
Quarter: 2019Q1

REPORT INFORMATION
  Report Type: Spontaneous
  Country: ES (occurrence: ES)
  Receive Date: 20190207
  Receipt Date: 20190207
  Transmission Date: 20190417
  Serious: Yes (Hospitalization, Other)
  Sender: FDA-Public Use
  Company Number: ES-PFIZER INC-2019048047

PATIENT
  Age: 27 Day
  Sex: Male
  Weight: .7 kg

DRUGS (1)
  1. MEROPENEM. [Suspect]
     Active Substance: MEROPENEM
     Indication: SEPSIS
     Dosage: UNK
     Route: 042
     Dates: start: 20171210, end: 20171212

REACTIONS (1)
  - Candida sepsis [Recovered/Resolved]

NARRATIVE: CASE EVENT DATE: 20171212
